FAERS Safety Report 17601854 (Version 2)
Quarter: 2022Q3

REPORT INFORMATION
  Report Type: Other
  Country: CO (occurrence: None)
  Receive Date: 20200330
  Receipt Date: 20220825
  Transmission Date: 20221027
  Serious: Yes (Other)
  Sender: FDA-Public Use
  Company Number: CO-ROCHE-1551900

PATIENT
  Sex: Female

DRUGS (1)
  1. TRASTUZUMAB [Suspect]
     Active Substance: TRASTUZUMAB
     Indication: Breast cancer
     Route: 042
     Dates: start: 20141004, end: 20150206

REACTIONS (5)
  - Herpes zoster [Recovered/Resolved]
  - Oral herpes zoster [Unknown]
  - Herpes zoster [Unknown]
  - General physical health deterioration [Unknown]
  - Pyrexia [Unknown]
